FAERS Safety Report 20337441 (Version 1)
Quarter: 2022Q1

REPORT INFORMATION
  Report Type: Spontaneous
  Country: US (occurrence: US)
  Receive Date: 20220114
  Receipt Date: 20220114
  Transmission Date: 20220424
  Serious: No
  Sender: FDA-Public Use
  Company Number: US-SA-SAC20220110000616

PATIENT
  Age: 61 Year
  Sex: Female

DRUGS (11)
  1. DUPIXENT [Suspect]
     Active Substance: DUPILUMAB
     Indication: Nasal polyps
     Dosage: DUPIXENT 200 MG/ 1.14 ML PFS 2^S
     Route: 058
     Dates: start: 20211123
  2. FLUCONAZOLE [Concomitant]
     Active Substance: FLUCONAZOLE
  3. AZELASTINE [Concomitant]
     Active Substance: AZELASTINE
     Dosage: 100MG
  4. FLUTICASONE [Concomitant]
     Active Substance: FLUTICASONE
     Dosage: 100MG
  5. BREO ELLIPTA [Concomitant]
     Active Substance: FLUTICASONE FUROATE\VILANTEROL TRIFENATATE
     Dosage: 200-25 MCG BLST W/DEV
  6. SPIRIVA RESPIMAT [Concomitant]
     Active Substance: TIOTROPIUM BROMIDE
     Dosage: 1MG
  7. BIOTIN [Concomitant]
     Active Substance: BIOTIN
  8. SPIRONOLACTONE [Concomitant]
     Active Substance: SPIRONOLACTONE
  9. PANTOPRAZOLE SODIUM [Concomitant]
     Active Substance: PANTOPRAZOLE SODIUM
  10. PREDNISONE [Concomitant]
     Active Substance: PREDNISONE
  11. CITRACAL + D [CALCIUM CITRATE;ERGOCALCIFEROL] [Concomitant]

REACTIONS (10)
  - Ear pain [Unknown]
  - Rhinorrhoea [Unknown]
  - Sneezing [Unknown]
  - Cough [Unknown]
  - Facial pain [Unknown]
  - Upper-airway cough syndrome [Unknown]
  - Condition aggravated [Unknown]
  - Hypogeusia [Unknown]
  - Product use issue [Unknown]
  - Product use in unapproved indication [Unknown]

NARRATIVE: CASE EVENT DATE: 20211123
